FAERS Safety Report 10257079 (Version 2)
Quarter: 2014Q3

REPORT INFORMATION
  Report Type: Spontaneous
  Country: CH (occurrence: CH)
  Receive Date: 20140625
  Receipt Date: 20140716
  Transmission Date: 20150326
  Serious: Yes (Other)
  Sender: FDA-Public Use
  Company Number: CH-UCBSA-2014002636

PATIENT
  Age: 59 Year
  Sex: Male

DRUGS (5)
  1. LAMOTRIN MEPHA [Concomitant]
     Active Substance: LAMOTRIGINE
     Dosage: 125MG AM, 125 MG LUNCHTIME, 150MG SUPPERTIME, 3X/DAY (TID)
     Route: 048
  2. VIMPAT [Suspect]
     Active Substance: LACOSAMIDE
     Dosage: UNK
     Route: 048
     Dates: start: 201204
  3. MYSOLINE [Concomitant]
     Active Substance: PRIMIDONE
     Dosage: 250MG AM, 250MG LUNCH TIME, 375MG SUPPERTIME, 3X/DAY (TID)
     Route: 048
  4. PHENYTOIN-GEROT [Concomitant]
     Dosage: 100 MG, 2X/DAY (BID)
     Dates: start: 2009
  5. VIMPAT [Suspect]
     Active Substance: LACOSAMIDE
     Dosage: 25MG AM AND 50MG PM, 2X/DAY (BID)
     Route: 048
     Dates: start: 201103

REACTIONS (2)
  - Atrial fibrillation [Not Recovered/Not Resolved]
  - Atrial flutter [Not Recovered/Not Resolved]

NARRATIVE: CASE EVENT DATE: 201404
